FAERS Safety Report 21551147 (Version 1)
Quarter: 2022Q4

REPORT INFORMATION
  Report Type: Spontaneous
  Country: US (occurrence: None)
  Receive Date: 20221103
  Receipt Date: 20221103
  Transmission Date: 20230113
  Serious: Yes (Hospitalization)
  Sender: FDA-Public Use
  Company Number: None

PATIENT
  Sex: Female
  Weight: 66.6 kg

DRUGS (3)
  1. TAXOL [Suspect]
     Active Substance: PACLITAXEL
  2. PERTUZUMAB [Suspect]
     Active Substance: PERTUZUMAB
  3. HERCEPTIN [Suspect]
     Active Substance: TRASTUZUMAB

REACTIONS (4)
  - Chest pain [None]
  - Musculoskeletal chest pain [None]
  - Arthralgia [None]
  - Post procedural complication [None]

NARRATIVE: CASE EVENT DATE: 20221019
